FAERS Safety Report 9606262 (Version 1)
Quarter: 2013Q4

REPORT INFORMATION
  Report Type: Spontaneous
  Country: US (occurrence: US)
  Receive Date: 20131008
  Receipt Date: 20131008
  Transmission Date: 20140711
  Serious: No
  Sender: FDA-Public Use
  Company Number: US-AMGEN-USASP2013046099

PATIENT
  Age: 64 Year
  Sex: Male

DRUGS (1)
  1. PROLIA [Suspect]
     Indication: OSTEOPOROSIS
     Dosage: UNK
     Dates: start: 20130103

REACTIONS (5)
  - Pyrexia [Unknown]
  - Cough [Unknown]
  - Urinary tract infection [Unknown]
  - Infection [Unknown]
  - Respiratory tract infection [Unknown]
